FAERS Safety Report 8834737 (Version 1)
Quarter: 2012Q4

REPORT INFORMATION
  Report Type: 
  Country: US (occurrence: US)
  Receive Date: 20121010
  Receipt Date: 20121010
  Transmission Date: 20130627
  Serious: Yes (Hospitalization, Disabling, Other)
  Sender: FDA-Public Use
  Company Number: US-009507513-2011SP027540

PATIENT

DRUGS (1)
  1. NUVARING [Suspect]
     Indication: CONTRACEPTION
     Dosage: UNK
     Dates: start: 20060810, end: 20090226

REACTIONS (9)
  - Ovarian cyst [Unknown]
  - Ovarian cyst ruptured [Unknown]
  - Hepatic steatosis [Unknown]
  - Nephrolithiasis [Unknown]
  - Portal vein thrombosis [Unknown]
  - Splenic vein thrombosis [Unknown]
  - Uterine leiomyoma [Unknown]
  - Road traffic accident [Unknown]
  - Muscle strain [Unknown]
